FAERS Safety Report 23893020 (Version 1)
Quarter: 2024Q2

REPORT INFORMATION
  Report Type: Spontaneous
  Country: US (occurrence: None)
  Receive Date: 20240524
  Receipt Date: 20240524
  Transmission Date: 20240716
  Serious: No
  Sender: FDA-Public Use
  Company Number: US-ROCHE-3379046

PATIENT
  Sex: Female
  Weight: 44.492 kg

DRUGS (8)
  1. ACTEMRA [Suspect]
     Active Substance: TOCILIZUMAB
     Indication: Rheumatoid arthritis
     Route: 058
  2. RITUXIMAB [Suspect]
     Active Substance: RITUXIMAB
     Indication: Rheumatoid arthritis
     Dosage: 2 INFUSIONS SEPARATED BY 2 WEEKS EVERY 6 MONTHS, INTERVAL 6 MONTHS
     Route: 041
     Dates: start: 20230508
  3. METHOTREXATE [Suspect]
     Active Substance: METHOTREXATE
     Indication: Rheumatoid arthritis
     Dosage: 2.5 MG PILLS
     Route: 048
  4. PREDNISONE [Concomitant]
     Active Substance: PREDNISONE
     Indication: Rheumatoid arthritis
  5. TYLENOL [Concomitant]
     Active Substance: ACETAMINOPHEN
  6. HYDROXYCHLOROQUINE [Concomitant]
     Active Substance: HYDROXYCHLOROQUINE
  7. HUMIRA [Concomitant]
     Active Substance: ADALIMUMAB
  8. ORENCIA [Concomitant]
     Active Substance: ABATACEPT

REACTIONS (3)
  - Headache [Recovered/Resolved]
  - Bursitis [Recovering/Resolving]
  - Drug ineffective [Unknown]

NARRATIVE: CASE EVENT DATE: 20230508
